FAERS Safety Report 5851838-5 (Version None)
Quarter: 2008Q3

REPORT INFORMATION
  Report Type: 
  Country: None (occurrence: None)
  Receive Date: 20080813
  Receipt Date: 20080617
  Transmission Date: 20090109
  Serious: Yes (Hospitalization, Other)
  Sender: FDA-Public Use
  Company Number: PHEH2008US05459

PATIENT
  Sex: Male

DRUGS (5)
  1. LOTENSIN [Suspect]
     Indication: CARDIAC DISORDER
     Dosage: 5 MG ; 10 MG ; 20 MG ; 5 MG
  2. LESCOL [Concomitant]
  3. BETAPACE [Concomitant]
  4. FLOMAX [Concomitant]
  5. ARICEPT [Concomitant]

REACTIONS (3)
  - BLOOD POTASSIUM INCREASED [None]
  - DIZZINESS [None]
  - HYPOTENSION [None]
